FAERS Safety Report 12652267 (Version 1)
Quarter: 2016Q3

REPORT INFORMATION
  Report Type: Spontaneous
  Country: NL (occurrence: NL)
  Receive Date: 20160815
  Receipt Date: 20160815
  Transmission Date: 20161109
  Serious: Yes (Hospitalization)
  Sender: FDA-Public Use
  Company Number: NL-CHIESI USA INC.-NL-2016CHI001231

PATIENT
  Sex: Female

DRUGS (1)
  1. TOBRAMYCIN. [Suspect]
     Active Substance: TOBRAMYCIN
     Indication: CYSTIC FIBROSIS
     Dosage: UNK
     Dates: start: 20150929

REACTIONS (3)
  - Sense of oppression [Recovered/Resolved]
  - Hypersensitivity [Recovered/Resolved]
  - Drug hypersensitivity [None]
